FAERS Safety Report 4832754-4 (Version None)
Quarter: 2005Q4

REPORT INFORMATION
  Report Type: 
  Country: None (occurrence: None)
  Receive Date: 20051117
  Receipt Date: 20051107
  Transmission Date: 20060501
  Serious: Yes (Other)
  Sender: FDA-Public Use
  Company Number: 235368K05USA

PATIENT
  Age: 43 Year
  Sex: Female

DRUGS (4)
  1. REBIF [Suspect]
     Indication: MULTIPLE SCLEROSIS
     Dosage: 44 MCG, 3 IN 1 WEEKS, SUBCUTANEOUS
     Route: 058
     Dates: start: 20050201
  2. ZANAFLEX [Concomitant]
  3. ZOLOFT [Concomitant]
  4. EFFEXOR [Concomitant]

REACTIONS (3)
  - AMNESIA [None]
  - FRUSTRATION [None]
  - READING DISORDER [None]
